FAERS Safety Report 6383345-8 (Version None)
Quarter: 2009Q4

REPORT INFORMATION
  Report Type: 
  Country: None (occurrence: None)
  Receive Date: 20091001
  Receipt Date: 20090922
  Transmission Date: 20100525
  Serious: Yes (Hospitalization, Other)
  Sender: FDA-Public Use
  Company Number: PHHO2009DE05457

PATIENT
  Sex: Male

DRUGS (17)
  1. STI571/CGP57148B T35717+CAPS [Suspect]
     Indication: PROSTATE CANCER
     Dosage: 400 MG, QD
     Dates: start: 20071220, end: 20090816
  2. DEXA [Suspect]
     Indication: PROSTATE CANCER
     Dosage: 0.5 MG, QD
  3. ARCOXIA [Suspect]
     Indication: PROSTATE CANCER
     Dosage: 60 MG, QD
  4. ACTOS [Suspect]
     Indication: PROSTATE CANCER
     Dosage: 30 MG, BID
  5. OVASTAT [Concomitant]
     Indication: PROSTATE CANCER
     Dosage: 250 MG, BID
  6. LEVOTHYROXINE SODIUM [Concomitant]
  7. PANTOPRAZOLE SODIUM [Concomitant]
  8. HYDROCHLOROTHIAZIDE [Concomitant]
  9. NOVALGIN [Concomitant]
  10. FENTANYL [Concomitant]
  11. AREDIA [Concomitant]
  12. IRENAT [Concomitant]
  13. DURAGESIC-100 [Concomitant]
  14. NULYTELY [Concomitant]
  15. SEVREDOL [Concomitant]
  16. LORAZEPAM [Concomitant]
  17. IOMERON-150 [Concomitant]

REACTIONS (16)
  - ASPHYXIA [None]
  - ATRIAL FIBRILLATION [None]
  - CHEST PAIN [None]
  - DRUG INEFFECTIVE [None]
  - FEAR [None]
  - GENERAL PHYSICAL HEALTH DETERIORATION [None]
  - HYPERTENSION [None]
  - HYPOMAGNESAEMIA [None]
  - NAUSEA [None]
  - OESOPHAGEAL HYPOMOTILITY [None]
  - PALPITATIONS [None]
  - PLEURISY [None]
  - TACHYARRHYTHMIA [None]
  - TACHYCARDIA [None]
  - UROSEPSIS [None]
  - VOMITING [None]
